FAERS Safety Report 13552027 (Version 1)
Quarter: 2017Q2

REPORT INFORMATION
  Report Type: Spontaneous
  Country: JP (occurrence: JP)
  Receive Date: 20170516
  Receipt Date: 20170516
  Transmission Date: 20170830
  Serious: Yes (Death, Other)
  Sender: FDA-Public Use
  Company Number: JP-AMGEN-JPNSP2017074972

PATIENT
  Age: 8 Decade
  Sex: Male

DRUGS (4)
  1. GRAN [Suspect]
     Active Substance: FILGRASTIM
     Indication: PRODUCT USED FOR UNKNOWN INDICATION
     Dosage: UNK
     Route: 065
  2. 5-FU [Suspect]
     Active Substance: FLUOROURACIL
     Indication: BASOSQUAMOUS CARCINOMA
     Dosage: 800 MG/M2, UNK
     Route: 041
  3. G-LASTA [Suspect]
     Active Substance: PEGFILGRASTIM
     Indication: PRODUCT USED FOR UNKNOWN INDICATION
     Dosage: UNK
     Route: 058
  4. CISPLATIN. [Suspect]
     Active Substance: CISPLATIN
     Indication: BASOSQUAMOUS CARCINOMA
     Dosage: 80 MG/M2, UNK
     Route: 041

REACTIONS (11)
  - Blood creatinine increased [Unknown]
  - Blood bilirubin increased [Unknown]
  - Deafness [Unknown]
  - Acute kidney injury [Unknown]
  - Neutrophil count decreased [Unknown]
  - Platelet count decreased [Unknown]
  - Alanine aminotransferase increased [Unknown]
  - Nausea [Unknown]
  - Multiple organ dysfunction syndrome [Fatal]
  - Bone marrow failure [Unknown]
  - Diarrhoea [Unknown]
